FAERS Safety Report 4412368-0 (Version None)
Quarter: 2004Q3

REPORT INFORMATION
  Report Type: 
  Country: None (occurrence: None)
  Receive Date: 20040730
  Receipt Date: 20040706
  Transmission Date: 20050211
  Serious: Yes (Life-Threatening, Other)
  Sender: FDA-Public Use
  Company Number: FR-MERCK-0407FRA00019

PATIENT
  Age: 13 Year
  Sex: Female
  Weight: 30 kg

DRUGS (4)
  1. PRIMAXIN [Suspect]
     Indication: POSTOPERATIVE FEVER
     Route: 042
     Dates: start: 20040701, end: 20040702
  2. PRIMAXIN [Suspect]
     Route: 042
     Dates: start: 20040703, end: 20040703
  3. GENTAMICIN [Concomitant]
     Indication: POSTOPERATIVE FEVER
     Route: 042
  4. METRONIDAZOLE [Concomitant]
     Indication: POSTOPERATIVE FEVER
     Route: 042

REACTIONS (4)
  - ACCIDENTAL OVERDOSE [None]
  - COMA [None]
  - CONVULSION [None]
  - RENAL FAILURE [None]
